FAERS Safety Report 16999397 (Version 2)
Quarter: 2019Q4

REPORT INFORMATION
  Report Type: Spontaneous
  Country: US (occurrence: US)
  Receive Date: 20191106
  Receipt Date: 20191205
  Transmission Date: 20200122
  Serious: No
  Sender: FDA-Public Use
  Company Number: US-PFIZER INC-2019476938

PATIENT
  Age: 44 Year
  Sex: Female

DRUGS (1)
  1. XELJANZ XR [Suspect]
     Active Substance: TOFACITINIB CITRATE
     Dosage: 11 MG,  (ONE TABLET; ENTER 30 FOR 30- DO NOT BREAK TABLET) DAILY
     Route: 048
     Dates: start: 20190730

REACTIONS (2)
  - Migraine [Unknown]
  - Cough [Unknown]
